FAERS Safety Report 9897925 (Version 1)
Quarter: 2014Q1

REPORT INFORMATION
  Report Type: Spontaneous
  Country: US (occurrence: US)
  Receive Date: 20140214
  Receipt Date: 20140214
  Transmission Date: 20141002
  Serious: No
  Sender: FDA-Public Use
  Company Number: US-PFIZER INC-2014042902

PATIENT
  Sex: Female

DRUGS (2)
  1. CHANTIX [Suspect]
     Indication: SMOKING CESSATION THERAPY
     Dosage: 1 MG, 2X/DAY
     Route: 048
     Dates: start: 2014
  2. CHANTIX [Suspect]
     Dosage: 1MG TABLET AND HALF OF 1MG TABLET , 1X/DAY
     Route: 048
     Dates: start: 2014

REACTIONS (1)
  - Anxiety [Unknown]
